FAERS Safety Report 23231492 (Version 1)
Quarter: 2023Q4

REPORT INFORMATION
  Report Type: Spontaneous
  Country: US (occurrence: US)
  Receive Date: 20231127
  Receipt Date: 20231127
  Transmission Date: 20240110
  Serious: No
  Sender: FDA-Public Use
  Company Number: US-AVADEL CNS PHARMACEUTICALS, LLC-2023AVA00242

PATIENT
  Age: 66 Year
  Sex: Female
  Weight: 85.714 kg

DRUGS (12)
  1. LUMRYZ [Suspect]
     Active Substance: SODIUM OXYBATE
     Indication: Narcolepsy
     Dosage: 4.5 G, ONCE NIGHTLY AT BEDTIME
     Route: 048
     Dates: start: 20231001, end: 202310
  2. LUMRYZ [Suspect]
     Active Substance: SODIUM OXYBATE
     Indication: Somnolence
     Dosage: 4.5 G, ONCE NIGHTLY AT BEDTIME
     Route: 048
     Dates: start: 202310
  3. DEXILANT [Concomitant]
     Active Substance: DEXLANSOPRAZOLE
  4. ESTRADIOL [Concomitant]
     Active Substance: ESTRADIOL
     Dosage: 1 MG, 4X/WEEK
  5. MYRBETRIQ [Concomitant]
     Active Substance: MIRABEGRON
  6. METOPROLOL [Concomitant]
     Active Substance: METOPROLOL
     Dosage: 75 MG
  7. METOPROLOL [Concomitant]
     Active Substance: METOPROLOL
     Dosage: 12.5 MG, 2X/DAY
  8. METOPROLOL TARTRATE [Concomitant]
     Active Substance: METOPROLOL TARTRATE
     Dosage: 25 MG, 1X/DAY
     Dates: end: 2023
  9. NAMENDA [Concomitant]
     Active Substance: MEMANTINE HYDROCHLORIDE
  10. XARELTO [Concomitant]
     Active Substance: RIVAROXABAN
  11. TRAZODONE [Concomitant]
     Active Substance: TRAZODONE HYDROCHLORIDE
     Dosage: 50 MG, 1X/DAY NIGHTLY
  12. TRAZODONE [Concomitant]
     Active Substance: TRAZODONE HYDROCHLORIDE
     Dosage: 100 MG, AT NIGHT

REACTIONS (11)
  - Migraine [Not Recovered/Not Resolved]
  - Middle insomnia [Unknown]
  - Fatigue [Not Recovered/Not Resolved]
  - Asthenia [Not Recovered/Not Resolved]
  - Product preparation error [Unknown]
  - Sedation [Not Recovered/Not Resolved]
  - Abdominal pain upper [Unknown]
  - Nocturia [Unknown]
  - Nausea [Unknown]
  - Somnolence [Unknown]
  - Drug ineffective [Not Recovered/Not Resolved]

NARRATIVE: CASE EVENT DATE: 20231001
